FAERS Safety Report 21151199 (Version 1)
Quarter: 2022Q3

REPORT INFORMATION
  Report Type: Other
  Country: CA (occurrence: CA)
  Receive Date: 20220730
  Receipt Date: 20220730
  Transmission Date: 20221027
  Serious: Yes (Other)
  Sender: FDA-Public Use
  Company Number: CA-CELLTRION INC.-2022CA011879

PATIENT

DRUGS (5)
  1. RITUXIMAB [Suspect]
     Active Substance: RITUXIMAB
     Indication: Product used for unknown indication
  2. RITUXIMAB [Suspect]
     Active Substance: RITUXIMAB
     Indication: Rheumatoid arthritis
     Dosage: 1000.0 MILLIGRAM
     Route: 042
  3. DICLOFENAC [Concomitant]
     Active Substance: DICLOFENAC
  4. FOLIC ACID [Concomitant]
     Active Substance: FOLIC ACID
  5. METHOTREXATE [Concomitant]
     Active Substance: METHOTREXATE
     Dosage: 1.0 DOSAGE FORM
     Route: 065

REACTIONS (8)
  - Swelling [Unknown]
  - Dyspnoea [Unknown]
  - Erythema [Unknown]
  - Hypersensitivity [Unknown]
  - Lacrimation increased [Unknown]
  - Pharyngeal swelling [Unknown]
  - Pruritus [Unknown]
  - Throat tightness [Unknown]
